FAERS Safety Report 15379168 (Version 1)
Quarter: 2018Q3

REPORT INFORMATION
  Report Type: Spontaneous
  Country: US (occurrence: US)
  Receive Date: 20180822
  Receipt Date: 20180822
  Transmission Date: 20181010
  Serious: Yes (Life-Threatening, Hospitalization)
  Sender: FDA-Public Use
  Company Number: None

PATIENT
  Age: 66 Year
  Sex: Female

DRUGS (1)
  1. AVASTIN [Suspect]
     Active Substance: BEVACIZUMAB
     Indication: MESOTHELIOMA
     Dates: start: 20180310, end: 20180803

REACTIONS (6)
  - Hypertension [None]
  - Dizziness [None]
  - Dysarthria [None]
  - Drug ineffective [None]
  - Transient ischaemic attack [None]
  - Headache [None]

NARRATIVE: CASE EVENT DATE: 20180811
